FAERS Safety Report 16938012 (Version 1)
Quarter: 2019Q4

REPORT INFORMATION
  Report Type: Spontaneous
  Country: US (occurrence: US)
  Receive Date: 20191018
  Receipt Date: 20191018
  Transmission Date: 20200122
  Serious: Yes (Life-Threatening)
  Sender: FDA-Public Use
  Company Number: US-SHIRE-US201827401

PATIENT
  Age: 36 Year
  Sex: Female

DRUGS (8)
  1. CALCIUM [Concomitant]
     Active Substance: CALCIUM
     Indication: PRODUCT USED FOR UNKNOWN INDICATION
  2. HCTZ [Concomitant]
     Active Substance: HYDROCHLOROTHIAZIDE
     Indication: MINERAL SUPPLEMENTATION
  3. CALCITRIOL. [Concomitant]
     Active Substance: CALCITRIOL
     Indication: PRODUCT USED FOR UNKNOWN INDICATION
  4. NATPARA (PARATHYROID HORMONE) [Suspect]
     Active Substance: PARATHYROID HORMONE
     Indication: HYPOPARATHYROIDISM
     Dosage: 100 ?G, 1X/DAY:QD
     Route: 065
     Dates: start: 20180313
  5. NATPARA (PARATHYROID HORMONE) [Suspect]
     Active Substance: PARATHYROID HORMONE
     Dosage: 50 UNK
     Route: 065
  6. TUMS [Concomitant]
     Active Substance: CALCIUM CARBONATE
     Indication: MINERAL SUPPLEMENTATION
  7. NATPARA (PARATHYROID HORMONE) [Suspect]
     Active Substance: PARATHYROID HORMONE
     Dosage: 75 MG, UNK
     Route: 065
  8. CALTRATE [Concomitant]
     Active Substance: CALCIUM CARBONATE
     Indication: MINERAL SUPPLEMENTATION

REACTIONS (3)
  - Inappropriate schedule of product administration [Recovering/Resolving]
  - Blood calcium decreased [Unknown]
  - Recalled product [Unknown]

NARRATIVE: CASE EVENT DATE: 20180705
